FAERS Safety Report 10392924 (Version 1)
Quarter: 2014Q3

REPORT INFORMATION
  Report Type: Spontaneous
  Country: US (occurrence: US)
  Receive Date: 20140819
  Receipt Date: 20140819
  Transmission Date: 20150326
  Serious: Yes (Death, Other)
  Sender: FDA-Public Use
  Company Number: PHHY2014US096635

PATIENT
  Age: 35 Year
  Sex: Female

DRUGS (11)
  1. MAGNESIUM [Suspect]
     Active Substance: MAGNESIUM
     Route: 041
  2. MORPHINE [Suspect]
     Active Substance: MORPHINE
     Indication: ANXIOLYTIC THERAPY
  3. OXYTOCIN. [Suspect]
     Active Substance: OXYTOCIN
     Indication: LABOUR INDUCTION
  4. BUPIVACAINE [Suspect]
     Active Substance: BUPIVACAINE
     Dosage: 0.062 %, UNK
  5. BUSPIRONE [Suspect]
     Active Substance: BUSPIRONE HYDROCHLORIDE
     Indication: ANXIOLYTIC THERAPY
  6. BUPIVACAINE [Suspect]
     Active Substance: BUPIVACAINE
     Dosage: 0.125 %, UNK
  7. LORAZEPAM. [Suspect]
     Active Substance: LORAZEPAM
     Indication: ANXIOLYTIC THERAPY
  8. BUSPIRONE [Suspect]
     Active Substance: BUSPIRONE HYDROCHLORIDE
     Indication: PAIN
  9. MORPHINE [Suspect]
     Active Substance: MORPHINE
     Indication: PAIN
  10. LORAZEPAM. [Suspect]
     Active Substance: LORAZEPAM
     Indication: PAIN
  11. FENTANYL. [Suspect]
     Active Substance: FENTANYL
     Dosage: 3 UG, PER MINUTE

REACTIONS (6)
  - Proteinuria [Unknown]
  - Blood pressure systolic increased [Unknown]
  - Death [Fatal]
  - Pre-eclampsia [Unknown]
  - Blood pressure increased [Unknown]
  - Maternal exposure during pregnancy [Unknown]
